FAERS Safety Report 6092091-X (Version None)
Quarter: 2009Q1

REPORT INFORMATION
  Report Type: 
  Country: None (occurrence: None)
  Receive Date: 20090225
  Receipt Date: 20090213
  Transmission Date: 20090719
  Serious: Yes (Hospitalization)
  Sender: FDA-Public Use
  Company Number: FR-PFIZER INC-2009171709

PATIENT

DRUGS (3)
  1. DALACIN [Suspect]
     Dosage: 600 MG, 4X/DAY
     Route: 042
     Dates: start: 20081030, end: 20081114
  2. AZACTAM [Suspect]
     Dosage: 2 G, 3X/DAY
     Route: 042
     Dates: start: 20081110, end: 20081114
  3. AMIKLIN [Suspect]
     Dosage: 1500 MG, 1X/DAY
     Route: 042
     Dates: start: 20081110, end: 20081114

REACTIONS (2)
  - DERMATITIS EXFOLIATIVE [None]
  - VASCULAR PURPURA [None]
